FAERS Safety Report 9912992 (Version 1)
Quarter: 2014Q1

REPORT INFORMATION
  Report Type: Spontaneous
  Country: FR (occurrence: FR)
  Receive Date: 20140220
  Receipt Date: 20140220
  Transmission Date: 20141002
  Serious: Yes (Hospitalization)
  Sender: FDA-Public Use
  Company Number: FR-ACCORD-022084

PATIENT
  Age: 64 Year
  Sex: Male

DRUGS (1)
  1. GEMCITABINE [Suspect]
     Indication: DUCTAL ADENOCARCINOMA OF PANCREAS
     Dosage: 2000 MG ACCORDING TO COURSE, (ONE COURSE A WEEK, 3 WEEKS EVERY 4 WEEKS
     Route: 042
     Dates: start: 20130808, end: 20131121

REACTIONS (5)
  - Pulmonary fibrosis [Not Recovered/Not Resolved]
  - Hyperthermia [Unknown]
  - Hyperhidrosis [Unknown]
  - Tremor [Unknown]
  - Interstitial lung disease [Recovering/Resolving]
